FAERS Safety Report 4868627-0 (Version None)
Quarter: 2005Q4

REPORT INFORMATION
  Report Type: 
  Country: None (occurrence: None)
  Receive Date: 20051223
  Receipt Date: 20051214
  Transmission Date: 20060501
  Serious: Yes (Life-Threatening, Other)
  Sender: FDA-Public Use
  Company Number: 2005093353

PATIENT
  Age: 59 Year
  Sex: Female
  Weight: 74.8435 kg

DRUGS (8)
  1. CLEOCIN HCL [Suspect]
     Indication: PHARYNGITIS
     Dosage: 900 MG (300 MG, 3 IN 1 D), ORAL
     Route: 048
     Dates: start: 20050527, end: 20050605
  2. ACIDOPHILLUS (LACTOBACILLUS ACIDOPHILLUS) [Concomitant]
  3. METAMUCIL-2 [Concomitant]
  4. TAMOXIFEN CITRATE [Concomitant]
  5. EFFEXOR [Concomitant]
  6. AMBIEN [Concomitant]
  7. ACETYLSALICYLIC ACID SRT [Concomitant]
  8. ASPIRIN [Concomitant]

REACTIONS (3)
  - DIARRHOEA [None]
  - OVARIAN CANCER METASTATIC [None]
  - VOMITING [None]
